FAERS Safety Report 5232815-4 (Version None)
Quarter: 2007Q1

REPORT INFORMATION
  Report Type: 
  Country: None (occurrence: None)
  Receive Date: 20070206
  Receipt Date: 20070206
  Transmission Date: 20070707
  Serious: Yes (Life-Threatening, Disabling)
  Sender: FDA-Public Use
  Company Number: None

PATIENT
  Age: 28 Year
  Sex: Female
  Weight: 81.6475 kg

DRUGS (1)
  1. LAMICTAL [Suspect]
     Indication: BIPOLAR DISORDER
     Dates: start: 20061204, end: 20070106

REACTIONS (5)
  - ORAL SOFT TISSUE DISORDER [None]
  - PAIN [None]
  - PYREXIA [None]
  - RASH [None]
  - SWOLLEN TONGUE [None]
